FAERS Safety Report 12947645 (Version 1)
Quarter: 2016Q4

REPORT INFORMATION
  Report Type: Spontaneous
  Country: IT (occurrence: IT)
  Receive Date: 20161116
  Receipt Date: 20161116
  Transmission Date: 20170207
  Serious: Yes (Other)
  Sender: FDA-Public Use
  Company Number: IT-PFIZER INC-2016526293

PATIENT
  Sex: Male

DRUGS (5)
  1. TOPIRAMATE. [Concomitant]
     Active Substance: TOPIRAMATE
     Indication: SEIZURE
     Dosage: 3 MG/KG, DAILY
  2. PHENYTOIN SODIUM. [Suspect]
     Active Substance: PHENYTOIN SODIUM
     Indication: SEIZURE
     Dosage: 0.5 MG/KG, UNK
  3. CLOBAZAM [Concomitant]
     Active Substance: CLOBAZAM
     Indication: SEIZURE
     Dosage: 1 MG/KG, DAILY
  4. PHENYTOIN SODIUM. [Suspect]
     Active Substance: PHENYTOIN SODIUM
     Dosage: 0.5 MG/KG DAILY FOLLOWED BY INCREMENTS OF 0.5 MG/KG EACH 5 DAYS
  5. PHENYTOIN SODIUM. [Suspect]
     Active Substance: PHENYTOIN SODIUM
     Dosage: 2.6 MG/KG, DAILY (FROM 2 WEEKS AFTER STARTING THERAPY)

REACTIONS (4)
  - Anticonvulsant drug level above therapeutic [Recovered/Resolved]
  - Toxicity to various agents [Recovered/Resolved]
  - Coma [Recovered/Resolved]
  - Lethargy [Recovered/Resolved]
